FAERS Safety Report 11542231 (Version 1)
Quarter: 2015Q3

REPORT INFORMATION
  Report Type: Spontaneous
  Country: US (occurrence: US)
  Receive Date: 20150923
  Receipt Date: 20150923
  Transmission Date: 20151125
  Serious: No
  Sender: FDA-Public Use
  Company Number: US-AKORN PHARMACEUTICALS-2015VER00087

PATIENT

DRUGS (1)
  1. CLINDAMYCIN PHOSPHATE TOPICAL SOLUTION USP (PLEDGET) 1% [Suspect]
     Active Substance: CLINDAMYCIN PHOSPHATE

REACTIONS (2)
  - Burning sensation [Unknown]
  - Product substitution issue [Unknown]
